FAERS Safety Report 8130554-3 (Version None)
Quarter: 2012Q1

REPORT INFORMATION
  Report Type: 
  Country: None (occurrence: None)
  Receive Date: 20120210
  Receipt Date: 20120206
  Transmission Date: 20120608
  Serious: Yes (Other)
  Sender: FDA-Public Use
  Company Number: GR-ASTRAZENECA-2012SE08311

PATIENT
  Age: 78 Year
  Sex: Male

DRUGS (8)
  1. PRINIVIL [Concomitant]
     Indication: HYPERTENSION
     Route: 048
  2. TAMSULOSIN HCL [Concomitant]
     Indication: BENIGN PROSTATIC HYPERPLASIA
     Route: 048
  3. NEBIVOLOL HCL [Concomitant]
     Indication: HYPERTENSION
     Route: 048
  4. SALOSPIR [Concomitant]
     Indication: ANTICOAGULANT THERAPY
     Route: 048
  5. BRILIQUE [Suspect]
     Indication: ACUTE CORONARY SYNDROME
     Route: 048
     Dates: start: 20120204
  6. DIOVAN [Concomitant]
     Indication: HYPERTENSION
     Route: 048
  7. PROHYPE [Concomitant]
     Indication: BENIGN PROSTATIC HYPERPLASIA
     Route: 048
  8. ATROST [Concomitant]
     Indication: HYPERCHOLESTEROLAEMIA
     Route: 048

REACTIONS (1)
  - ATRIOVENTRICULAR BLOCK SECOND DEGREE [None]
